FAERS Safety Report 10346545 (Version 3)
Quarter: 2014Q3

REPORT INFORMATION
  Report Type: Spontaneous
  Country: CA (occurrence: CA)
  Receive Date: 20140729
  Receipt Date: 20140808
  Transmission Date: 20150326
  Serious: Yes (Other)
  Sender: FDA-Public Use
  Company Number: CA-AMGEN-CANSP2014041064

PATIENT
  Age: 92 Year
  Sex: Female

DRUGS (1)
  1. PROLIA [Suspect]
     Active Substance: DENOSUMAB
     Indication: OSTEOPOROSIS POSTMENOPAUSAL
     Dosage: 60 MG, Q6MO
     Route: 058
     Dates: start: 20111114, end: 20140707

REACTIONS (7)
  - Erythema [Unknown]
  - Eczema [Recovered/Resolved]
  - Cellulitis [Not Recovered/Not Resolved]
  - Peripheral venous disease [Unknown]
  - Vasodilatation [Unknown]
  - Scleroderma [Unknown]
  - Varicose vein [Unknown]
